FAERS Safety Report 25929568 (Version 1)
Quarter: 2025Q4

REPORT INFORMATION
  Report Type: Spontaneous
  Country: GB (occurrence: GB)
  Receive Date: 20251016
  Receipt Date: 20251016
  Transmission Date: 20260117
  Serious: Yes (Other)
  Sender: MYLAN
  Company Number: GB-MYLANLABS-2025M1032827

PATIENT
  Age: 28 Year
  Sex: Male
  Weight: 156.4 kg

DRUGS (10)
  1. CLOZAPINE [Suspect]
     Active Substance: CLOZAPINE
     Indication: Schizophrenia
     Dosage: BID (TWICE DAILY) (100MG AND 175 MG)
     Dates: start: 20250314, end: 20250408
  2. MIRTAZAPINE [Concomitant]
     Active Substance: MIRTAZAPINE
     Indication: Depressed mood
     Dosage: 30 MILLIGRAM, PM (NIGHT)
     Dates: start: 20240221
  3. OMEPRAZOLE [Concomitant]
     Active Substance: OMEPRAZOLE
     Indication: Gastrooesophageal reflux disease
     Dosage: 20 MILLIGRAM, AM (MORNING)
     Dates: start: 20250331
  4. BECLOMETHASONE DIPROPIONATE [Concomitant]
     Active Substance: BECLOMETHASONE DIPROPIONATE
     Indication: Dyspnoea
     Dosage: 50 MICROGRAM, BID (TWICE DAILY)
     Dates: start: 20250226
  5. SCOPOLAMINE HYDROBROMIDE [Concomitant]
     Active Substance: SCOPOLAMINE HYDROBROMIDE
     Indication: Salivary hypersecretion
     Dosage: 300 MICROGRAM, TID (THREE TIMES DAILY)
     Dates: start: 20250320
  6. METFORMIN [Concomitant]
     Active Substance: METFORMIN HYDROCHLORIDE
     Indication: Glucose tolerance impaired
     Dosage: 1000 MILLIGRAM, BID (TWICE DAILY)
     Dates: start: 20250412
  7. METFORMIN [Concomitant]
     Active Substance: METFORMIN HYDROCHLORIDE
     Indication: Weight control
  8. NICOTINELL [Concomitant]
     Active Substance: NICOTINE
     Indication: Nicotine dependence
     Dosage: 2 MILLIGRAM, QID (FOUR TIMES DAILY)
  9. SENNA [Concomitant]
     Active Substance: SENNOSIDES
     Indication: Change of bowel habit
     Dosage: 15 MILLIGRAM, PM (NIGHT)
     Dates: start: 20250331
  10. LACTULOSE [Concomitant]
     Active Substance: LACTULOSE
     Indication: Change of bowel habit
     Dosage: 15 MILLILITER, PM (NIGHT)
     Dates: start: 20250407

REACTIONS (3)
  - Myocarditis [Recovered/Resolved]
  - Eosinophilia [Recovered/Resolved]
  - Off label use [Unknown]

NARRATIVE: CASE EVENT DATE: 20250407
